FAERS Safety Report 9519386 (Version 1)
Quarter: 2013Q3

REPORT INFORMATION
  Report Type: Report from Study
  Country: CA (occurrence: CA)
  Receive Date: 20130912
  Receipt Date: 20130912
  Transmission Date: 20140515
  Serious: Yes (Hospitalization, Other)
  Sender: FDA-Public Use
  Company Number: CA-ABBOTT-13P-028-1143101-00

PATIENT
  Sex: Female

DRUGS (1)
  1. HUMIRA [Suspect]
     Indication: CROHN^S DISEASE
     Route: 058
     Dates: start: 20091223

REACTIONS (5)
  - Pulse abnormal [Unknown]
  - Abdominal pain upper [Unknown]
  - Hypotension [Unknown]
  - Dehydration [Unknown]
  - Foreign body [Recovered/Resolved]
